FAERS Safety Report 4947733-6 (Version None)
Quarter: 2006Q1

REPORT INFORMATION
  Report Type: 
  Country: None (occurrence: None)
  Receive Date: 20060314
  Receipt Date: 20060302
  Transmission Date: 20060701
  Serious: Yes (Hospitalization, Other)
  Sender: FDA-Public Use
  Company Number: HQWYE927216AUG05

PATIENT
  Age: 50 Year
  Sex: Female
  Weight: 81.72 kg

DRUGS (1)
  1. PREMPHASE 14/14 [Suspect]
     Indication: MENOPAUSE

REACTIONS (3)
  - BREAST CANCER IN SITU [None]
  - BREAST CANCER METASTATIC [None]
  - BREAST CANCER RECURRENT [None]
